FAERS Safety Report 4336899-7 (Version None)
Quarter: 2004Q2

REPORT INFORMATION
  Report Type: 
  Country: None (occurrence: None)
  Receive Date: 20040407
  Receipt Date: 20040323
  Transmission Date: 20050107
  Serious: Yes (Other)
  Sender: FDA-Public Use
  Company Number: USA040259879

PATIENT
  Age: 63 Year
  Sex: Male

DRUGS (2)
  1. NPH ILETIN II (PORK) [Suspect]
     Indication: DIABETES MELLITUS
     Dosage: 30 U IN THE MORNING
     Dates: start: 19990101
  2. REGULAR INSULIN [Suspect]
     Indication: DIABETES MELLITUS
     Dosage: 20 U IN THE MORNING
     Dates: start: 19990101

REACTIONS (3)
  - BLOOD GLUCOSE DECREASED [None]
  - COMA [None]
  - EYE HAEMORRHAGE [None]
